FAERS Safety Report 22224980 (Version 1)
Quarter: 2023Q2

REPORT INFORMATION
  Report Type: Spontaneous
  Country: GB (occurrence: GB)
  Receive Date: 20230418
  Receipt Date: 20230418
  Transmission Date: 20230722
  Serious: Yes (Other)
  Sender: FDA-Public Use
  Company Number: GB-MHRA-MED-202304131336417030-QPYDS

PATIENT
  Age: 53 Year
  Sex: Male
  Weight: 60 kg

DRUGS (5)
  1. DOXYCYCLINE [Suspect]
     Active Substance: DOXYCYCLINE
     Indication: Empyema
     Dosage: 100 MILLIGRAM, BID
     Route: 065
     Dates: start: 20230406
  2. VANCOMYCIN [Suspect]
     Active Substance: VANCOMYCIN
     Indication: Empyema
     Dosage: 1000 MILLIGRAM, BID
     Route: 065
     Dates: start: 20230404, end: 20230406
  3. ENOXAPARIN [Concomitant]
     Active Substance: ENOXAPARIN
     Dosage: UNK
     Route: 065
  4. MORPHINE [Concomitant]
     Active Substance: MORPHINE
     Indication: Pain
     Dosage: UNK
     Route: 065
  5. ACETAMINOPHEN [Concomitant]
     Active Substance: ACETAMINOPHEN
     Dosage: UNK
     Route: 065

REACTIONS (2)
  - Deafness [Unknown]
  - Tinnitus [Unknown]
